FAERS Safety Report 10699764 (Version 2)
Quarter: 2016Q4

REPORT INFORMATION
  Report Type: Spontaneous
  Country: US (occurrence: US)
  Receive Date: 20150109
  Receipt Date: 20161228
  Transmission Date: 20170206
  Serious: Yes (Hospitalization)
  Sender: FDA-Public Use
  Company Number: US-AUROBINDO-AUR-APL-2015-00018

PATIENT
  Age: 65 Year
  Sex: Male

DRUGS (4)
  1. RIBAVIRIN. [Suspect]
     Active Substance: RIBAVIRIN
     Indication: CHRONIC HEPATITIS C
     Dosage: 1200 MG, DAILY
     Route: 065
     Dates: start: 201303
  2. PEGYLATED INTERFERON NOS [Suspect]
     Active Substance: PEGINTERFERON ALFA-2A OR PEGINTERFERON ALFA-2B OR PEGINTERFERON BETA-1A OR PEGINTERFERON LAMBDA-1A
     Indication: CHRONIC HEPATITIS C
     Dosage: UNK
     Route: 065
  3. RIBAVIRIN. [Suspect]
     Active Substance: RIBAVIRIN
     Dosage: 400 MG, DAILY
     Route: 065
     Dates: start: 20130315
  4. TELAPREVIR [Suspect]
     Active Substance: TELAPREVIR
     Indication: CHRONIC HEPATITIS C
     Dosage: 750 MG Q8H
     Route: 065
     Dates: start: 201303

REACTIONS (8)
  - Ascites [Recovered/Resolved]
  - Lymphopenia [Unknown]
  - Fatigue [Recovering/Resolving]
  - Mycobacterium abscessus infection [Recovered/Resolved]
  - Lung infection [Recovered/Resolved]
  - Anorectal discomfort [Recovering/Resolving]
  - Cough [Recovered/Resolved]
  - Oedema peripheral [Recovered/Resolved]
